FAERS Safety Report 5614197-9 (Version None)
Quarter: 2008Q1

REPORT INFORMATION
  Report Type: 
  Country: None (occurrence: None)
  Receive Date: 20080205
  Receipt Date: 20080201
  Transmission Date: 20080703
  Serious: Yes (Life-Threatening)
  Sender: FDA-Public Use
  Company Number: D0055997A

PATIENT
  Age: 69 Year
  Sex: Male

DRUGS (13)
  1. AUGMENTIN '125' [Suspect]
     Indication: INFECTION PROPHYLAXIS
     Dosage: 875MG THREE TIMES PER DAY
     Route: 048
     Dates: start: 20050114, end: 20050123
  2. VOLTAREN [Suspect]
     Indication: ARTHRITIS
     Route: 048
     Dates: start: 20050119
  3. HEPARIN [Suspect]
     Indication: PROPHYLAXIS
     Dosage: 25000IU PER DAY
     Route: 042
     Dates: start: 20050114
  4. IRENAT [Suspect]
     Indication: HYPERTHYROIDISM
     Dosage: 40DROP THREE TIMES PER DAY
     Route: 048
     Dates: start: 20050115, end: 20050128
  5. METOPROLOL SUCCINATE [Suspect]
     Indication: HYPERTENSION
     Route: 048
     Dates: start: 20050115
  6. UNAT [Suspect]
     Route: 048
     Dates: start: 20050115
  7. ZOCOR [Suspect]
     Dosage: 20MG PER DAY
     Route: 048
     Dates: start: 20050115
  8. CARBIMAZOL [Suspect]
     Indication: HYPERTHYROIDISM
     Route: 048
     Dates: start: 20050115
  9. ASPIRIN [Suspect]
     Dosage: 100MG PER DAY
     Route: 048
     Dates: start: 20050115
  10. TAVOR [Suspect]
     Indication: RESTLESSNESS
     Dosage: .5MG TWICE PER DAY
     Route: 048
     Dates: start: 20050116
  11. DELIX PLUS [Suspect]
     Indication: HYPERTENSION
     Dosage: 2.5MG PER DAY
     Route: 048
     Dates: start: 20050116
  12. MULTIPLE MEDICATION [Suspect]
  13. MULTIPLE MEDICATION [Concomitant]

REACTIONS (24)
  - ARTHRITIS [None]
  - BLISTER [None]
  - CARDIAC FAILURE [None]
  - CONJUNCTIVITIS [None]
  - DYSPHAGIA [None]
  - FEAR [None]
  - GENITAL EROSION [None]
  - GOUT [None]
  - HYPERTENSION [None]
  - HYPERTHYROIDISM [None]
  - HYPERURICAEMIA [None]
  - LIP EROSION [None]
  - NASAL MUCOSAL DISORDER [None]
  - NIKOLSKY'S SIGN [None]
  - ORAL MUCOSA EROSION [None]
  - PAIN [None]
  - PAIN OF SKIN [None]
  - PRURITUS [None]
  - PULMONARY OEDEMA [None]
  - RASH MACULAR [None]
  - RESTLESSNESS [None]
  - SLEEP DISORDER [None]
  - STEVENS-JOHNSON SYNDROME [None]
  - TOXIC EPIDERMAL NECROLYSIS [None]
